FAERS Safety Report 11456456 (Version 1)
Quarter: 2015Q3

REPORT INFORMATION
  Report Type: Spontaneous
  Country: BR (occurrence: BR)
  Receive Date: 20150903
  Receipt Date: 20150903
  Transmission Date: 20151125
  Serious: Yes (Death, Hospitalization)
  Sender: FDA-Public Use
  Company Number: BR-B.I. PHARMACEUTICALS,INC./RIDGEFIELD-2015-BI-47609BR

PATIENT
  Sex: Female
  Weight: 40 kg

DRUGS (6)
  1. SIFROL ER [Suspect]
     Active Substance: PRAMIPEXOLE
     Indication: PARKINSON^S DISEASE
     Dosage: 0.75 MG
     Route: 048
     Dates: start: 2012, end: 20150824
  2. ATENOLOL. [Concomitant]
     Active Substance: ATENOLOL
     Indication: HYPERTENSION
     Dosage: 50 MG
     Route: 048
     Dates: start: 2005, end: 20150824
  3. DIOSMIN [Concomitant]
     Active Substance: DIOSMIN
     Indication: CARDIOVASCULAR DISORDER
     Route: 048
     Dates: start: 2011, end: 20150824
  4. PROLOPA [Concomitant]
     Active Substance: BENSERAZIDE\LEVODOPA
     Indication: PARKINSON^S DISEASE
     Dosage: BD; STRENGTH: 100/25MG; DAILY DOSE: 600/150MG
     Route: 048
     Dates: start: 2012, end: 20150824
  5. EXIT [Concomitant]
     Indication: PARKINSON^S DISEASE
     Route: 048
     Dates: start: 2012, end: 20150824
  6. LUDIOMIL [Concomitant]
     Active Substance: MAPROTILINE HYDROCHLORIDE
     Indication: PARKINSON^S DISEASE
     Dosage: 25 MG
     Route: 048
     Dates: start: 2012, end: 20150824

REACTIONS (2)
  - Parkinsonism [Fatal]
  - Respiratory failure [Fatal]
